FAERS Safety Report 6878426-6 (Version None)
Quarter: 2010Q3

REPORT INFORMATION
  Report Type: 
  Country: None (occurrence: None)
  Receive Date: 20100728
  Receipt Date: 20100723
  Transmission Date: 20110219
  Serious: Yes (Other)
  Sender: FDA-Public Use
  Company Number: CN-GENZYME-CERZ-1001396

PATIENT

DRUGS (2)
  1. CEREZYME [Suspect]
     Indication: GAUCHER'S DISEASE
     Dosage: 27 U/KG, Q2W
     Route: 042
     Dates: start: 20090901
  2. CEREZYME [Suspect]
     Dosage: 60 U/KG, Q2W
     Route: 042
     Dates: start: 20080701, end: 20090901

REACTIONS (4)
  - CALCULUS BLADDER [None]
  - NEPHROLITHIASIS [None]
  - SPLENOMEGALY [None]
  - THROMBOCYTOPENIA [None]
